FAERS Safety Report 12718198 (Version 1)
Quarter: 2016Q3

REPORT INFORMATION
  Report Type: Spontaneous
  Country: CL (occurrence: CL)
  Receive Date: 20160906
  Receipt Date: 20160906
  Transmission Date: 20161109
  Serious: Yes (Life-Threatening, Hospitalization)
  Sender: FDA-Public Use
  Company Number: CL-BAUSCH-BL-2016-021468

PATIENT
  Age: 74 Year
  Sex: Male

DRUGS (7)
  1. SPIRONOLACTONE. [Interacting]
     Active Substance: SPIRONOLACTONE
     Indication: PRODUCT USED FOR UNKNOWN INDICATION
     Route: 065
  2. FUROSEMIDE. [Concomitant]
     Active Substance: FUROSEMIDE
     Indication: PRODUCT USED FOR UNKNOWN INDICATION
  3. METFORMIN 1000 MG, VILDAGLIPTIN 50 MG [Suspect]
     Active Substance: METFORMIN\VILDAGLIPTIN
     Indication: PRODUCT USED FOR UNKNOWN INDICATION
     Dosage: COMBINATION OF VILDAGLIPTIN 50 MG PLUS METFORMIN 1000 MG
     Route: 065
  4. BISOPROLOL [Interacting]
     Active Substance: BISOPROLOL
     Indication: PRODUCT USED FOR UNKNOWN INDICATION
     Route: 065
  5. ATORVASTATIN [Concomitant]
     Active Substance: ATORVASTATIN
     Indication: PRODUCT USED FOR UNKNOWN INDICATION
  6. ACETYLSALICYLIC ACID [Interacting]
     Active Substance: ASPIRIN
     Indication: PRODUCT USED FOR UNKNOWN INDICATION
     Route: 065
  7. METFORMIN [Suspect]
     Active Substance: METFORMIN HYDROCHLORIDE
     Indication: PRODUCT USED FOR UNKNOWN INDICATION
     Route: 065

REACTIONS (13)
  - Electrocardiogram QT prolonged [None]
  - Renal impairment [None]
  - Drug interaction [Recovering/Resolving]
  - Atrioventricular block [None]
  - Overdose [Recovering/Resolving]
  - Sinus bradycardia [None]
  - Hypotension [None]
  - Lactic acidosis [Recovering/Resolving]
  - Electrocardiogram T wave peaked [None]
  - Dehydration [None]
  - Electrocardiogram QRS complex prolonged [None]
  - Hyperkalaemia [Recovering/Resolving]
  - Metabolic acidosis [None]
